FAERS Safety Report 10196510 (Version 3)
Quarter: 2014Q2

REPORT INFORMATION
  Report Type: Spontaneous
  Country: BE (occurrence: BE)
  Receive Date: 20140527
  Receipt Date: 20140619
  Transmission Date: 20141212
  Serious: Yes (Life-Threatening, Hospitalization)
  Sender: FDA-Public Use
  Company Number: BE-PFIZER INC-2014141003

PATIENT
  Age: 88 Year
  Sex: Female

DRUGS (11)
  1. AMIODARONE HCL [Suspect]
     Indication: ARRHYTHMIA
     Dosage: UNK
     Route: 065
  2. FUROSEMIDE [Suspect]
     Dosage: 40 MG, DAILY
     Route: 065
  3. CITALOPRAM [Suspect]
     Dosage: 0.5 DF, 1X/DAY
     Route: 065
  4. THIAMAZOLE [Concomitant]
     Indication: GOITRE
     Dosage: 0.5 DF, 1X/DAY
  5. ALLOPURINOL [Concomitant]
     Dosage: 100 MG, 1X/DAY
  6. ACETYLSALICYLIC ACID [Concomitant]
     Dosage: 160 MG, 1X/DAY
  7. LORAZEPAM [Concomitant]
     Dosage: 0.5 DF, 1X/DAY
  8. SIMVASTATIN [Concomitant]
     Dosage: 20 MG, 1X/DAY
  9. LISINOPRIL [Concomitant]
     Dosage: 20 MG, 1X/DAY
  10. COLECALCIFEROL [Concomitant]
     Dosage: 1 AMPULE
  11. LICORICE [Concomitant]
     Dosage: UNK

REACTIONS (8)
  - Hypokalaemia [Recovering/Resolving]
  - Electrocardiogram ST segment depression [Recovered/Resolved]
  - Extrasystoles [Recovering/Resolving]
  - Electrocardiogram QT prolonged [Recovered/Resolved]
  - Torsade de pointes [Recovered/Resolved]
  - Ventricular tachycardia [Recovering/Resolving]
  - Blood creatine phosphokinase MB increased [Recovering/Resolving]
  - Troponin increased [Recovering/Resolving]
